FAERS Safety Report 21916813 (Version 1)
Quarter: 2023Q1

REPORT INFORMATION
  Report Type: Spontaneous
  Country: None (occurrence: DK)
  Receive Date: 20230126
  Receipt Date: 20230126
  Transmission Date: 20230418
  Serious: Yes (Other)
  Sender: FDA-Public Use
  Company Number: DK-Therakind Limited-2137065

PATIENT
  Age: 35 Year
  Sex: Male

DRUGS (11)
  1. METHOTREXATE [Suspect]
     Active Substance: METHOTREXATE
     Indication: Diffuse large B-cell lymphoma stage IV
     Route: 065
  2. CYCLOPHOSPHAMIDE [Suspect]
     Active Substance: CYCLOPHOSPHAMIDE
  3. MABTHERA [Suspect]
     Active Substance: RITUXIMAB
  4. VINCRISTINE [Suspect]
     Active Substance: VINCRISTINE
  5. DOXORUBICIN [Suspect]
     Active Substance: DOXORUBICIN
  6. CARBOPLATIN [Suspect]
     Active Substance: CARBOPLATIN
  7. PREDNISOLONE [Suspect]
     Active Substance: PREDNISOLONE
  8. ETOPOSIDE [Suspect]
     Active Substance: ETOPOSIDE
  9. RITUXIMAB [Suspect]
     Active Substance: RITUXIMAB
  10. IFOSFAMIDE [Suspect]
     Active Substance: IFOSFAMIDE
  11. TEMODAL [Suspect]
     Active Substance: TEMOZOLOMIDE

REACTIONS (3)
  - Disease progression [Unknown]
  - Neuropathy peripheral [Unknown]
  - Product use in unapproved indication [Unknown]
